FAERS Safety Report 24967313 (Version 5)
Quarter: 2025Q4

REPORT INFORMATION
  Report Type: Report from Study
  Country: US (occurrence: US)
  Receive Date: 20250213
  Receipt Date: 20251209
  Transmission Date: 20260118
  Serious: No
  Sender: TAKEDA
  Company Number: US-TAKEDA-2024TUS059727

PATIENT
  Age: 70 Year
  Sex: Female

DRUGS (12)
  1. TEDUGLUTIDE [Suspect]
     Active Substance: TEDUGLUTIDE
     Indication: Short-bowel syndrome
     Dosage: 2.93 MILLIGRAM, QD
     Dates: start: 20180826, end: 20190530
  2. TEDUGLUTIDE [Suspect]
     Active Substance: TEDUGLUTIDE
     Dosage: 2.93 MILLIGRAM, QD
     Dates: start: 201906, end: 20201006
  3. TEDUGLUTIDE [Suspect]
     Active Substance: TEDUGLUTIDE
     Dosage: 2.775 MILLIGRAM, QD
     Dates: start: 20201007, end: 20220901
  4. TEDUGLUTIDE [Suspect]
     Active Substance: TEDUGLUTIDE
     Dosage: 2.775 MILLIGRAM, QD
     Dates: start: 20220915
  5. TRIAMCINOLONE [Concomitant]
     Active Substance: TRIAMCINOLONE
     Indication: Dermatitis
     Dosage: UNK UNK, BID
     Route: 061
     Dates: start: 20240305, end: 20240319
  6. HYDROCORTISONE [Concomitant]
     Active Substance: HYDROCORTISONE
     Indication: Dermatitis
     Dosage: UNK
     Route: 061
  7. GABAPENTIN [Concomitant]
     Active Substance: GABAPENTIN
     Indication: Hot flush
     Dosage: 400 MILLIGRAM, QD
     Dates: start: 202410
  8. OMEPRAZOLE [Concomitant]
     Active Substance: OMEPRAZOLE
     Indication: Gastrooesophageal reflux disease
     Dosage: 40 MILLIGRAM, BID
  9. FAMOTIDINE [Concomitant]
     Active Substance: FAMOTIDINE
     Indication: Gastrooesophageal reflux disease
     Dosage: 40 MILLIGRAM, BID
     Dates: start: 20210614
  10. DOXYCYCLINE [Concomitant]
     Active Substance: DOXYCYCLINE
     Indication: Gastrointestinal microorganism overgrowth
     Dosage: 100 MILLIGRAM
  11. CHOLESTYRAMINE [Concomitant]
     Active Substance: CHOLESTYRAMINE
     Indication: Diarrhoea
     Dosage: UNK UNK, TID
     Dates: start: 20210726
  12. NORCO [Concomitant]
     Active Substance: ACETAMINOPHEN\HYDROCODONE BITARTRATE
     Indication: Arthritis
     Dosage: 5 MILLIGRAM, BID
     Dates: start: 20220124

REACTIONS (9)
  - Anorectal polyp [Recovered/Resolved]
  - Urinary tract infection [Recovered/Resolved]
  - Skin papilloma [Recovered/Resolved]
  - Xerosis [Recovered/Resolved]
  - Ankle fracture [Recovered/Resolved]
  - Dysuria [Recovered/Resolved]
  - Dehydration [Recovered/Resolved]
  - Chest pain [Recovered/Resolved]
  - Vomiting [Recovered/Resolved]

NARRATIVE: CASE EVENT DATE: 20240101
